FAERS Safety Report 15308731 (Version 4)
Quarter: 2019Q4

REPORT INFORMATION
  Report Type: Spontaneous
  Country: US (occurrence: US)
  Receive Date: 20180822
  Receipt Date: 20191023
  Transmission Date: 20200122
  Serious: Yes (Hospitalization)
  Sender: FDA-Public Use
  Company Number: US-ACTELION-A-NJ2018-177400

PATIENT
  Sex: Female
  Weight: 131.52 kg

DRUGS (4)
  1. OPSUMIT [Suspect]
     Active Substance: MACITENTAN
     Indication: PULMONARY ARTERIAL HYPERTENSION
     Dosage: 10 MG, QD
     Route: 048
  2. REMODULIN [Suspect]
     Active Substance: TREPROSTINIL
     Indication: PULMONARY ARTERIAL HYPERTENSION
     Dosage: 9.5 NG/KG, PER MIN
     Route: 042
     Dates: start: 20191016
  3. SILDENAFIL CITRATE. [Concomitant]
     Active Substance: SILDENAFIL CITRATE
  4. VENTAVIS [Suspect]
     Active Substance: ILOPROST
     Indication: PULMONARY ARTERIAL HYPERTENSION
     Dosage: 5 MCG INHALED 6-9 TIMES QD
     Route: 055
     Dates: end: 20191017

REACTIONS (7)
  - Pulmonary arterial hypertension [Unknown]
  - Headache [Recovered/Resolved]
  - Sinusitis [Unknown]
  - Pain in jaw [Recovered/Resolved]
  - Disease progression [Unknown]
  - Nasal congestion [Unknown]
  - Joint stiffness [Unknown]
